FAERS Safety Report 19167250 (Version 1)
Quarter: 2021Q2

REPORT INFORMATION
  Report Type: Spontaneous
  Country: US (occurrence: US)
  Receive Date: 20210420
  Receipt Date: 20210420
  Transmission Date: 20210717
  Serious: Yes (Life-Threatening, Disabling)
  Sender: FDA-Public Use
  Company Number: None

PATIENT
  Sex: Female

DRUGS (1)
  1. FOLLISTIM AQ [Suspect]
     Active Substance: FOLLITROPIN
     Indication: INFERTILITY

REACTIONS (17)
  - Abdominal pain [None]
  - Fatigue [None]
  - Autonomic nervous system imbalance [None]
  - Hypersensitivity [None]
  - Urticaria [None]
  - Sinusitis [None]
  - Swelling [None]
  - Rash [None]
  - Pruritus [None]
  - Seizure [None]
  - Throat tightness [None]
  - Ovarian hyperstimulation syndrome [None]
  - Hypotension [None]
  - Contraindicated product administered [None]
  - Dizziness [None]
  - Vision blurred [None]
  - Headache [None]
